FAERS Safety Report 9004052 (Version 1)
Quarter: 2013Q1

REPORT INFORMATION
  Report Type: Spontaneous
  Country: JP (occurrence: JP)
  Receive Date: 20130109
  Receipt Date: 20130109
  Transmission Date: 20140127
  Serious: Yes (Other)
  Sender: FDA-Public Use
  Company Number: JP-RANBAXY-2012RR-63845

PATIENT
  Age: 81 Year
  Sex: Female

DRUGS (3)
  1. DONEPEZIL [Suspect]
     Indication: DEMENTIA ALZHEIMER^S TYPE
     Dosage: UNK
     Route: 065
     Dates: end: 201110
  2. RIVASTACH [Concomitant]
     Indication: DEMENTIA ALZHEIMER^S TYPE
     Dosage: 4.5 MG IN A 2.5 CM^2
     Route: 062
     Dates: start: 201110
  3. RIVASTACH [Concomitant]
     Dosage: 18 MG IN A 10 CM^2
     Route: 062

REACTIONS (1)
  - Drug ineffective [Recovering/Resolving]
